FAERS Safety Report 18128963 (Version 1)
Quarter: 2020Q3

REPORT INFORMATION
  Report Type: Spontaneous
  Country: US (occurrence: US)
  Receive Date: 20200807
  Receipt Date: 20200807
  Transmission Date: 20201103
  Serious: Yes (Hospitalization)
  Sender: FDA-Public Use
  Company Number: None

PATIENT
  Age: 86 Year
  Sex: Male

DRUGS (1)
  1. AGRYLIN [Suspect]
     Active Substance: ANAGRELIDE HYDROCHLORIDE
     Indication: ESSENTIAL THROMBOCYTHAEMIA
     Dosage: ?          OTHER DOSE:2 CAPSULES;?
     Route: 048
     Dates: start: 20200502

REACTIONS (2)
  - Hypertension [None]
  - Acne [None]

NARRATIVE: CASE EVENT DATE: 20200801
